FAERS Safety Report 6141500-6 (Version None)
Quarter: 2009Q2

REPORT INFORMATION
  Report Type: 
  Country: None (occurrence: None)
  Receive Date: 20090402
  Receipt Date: 20090401
  Transmission Date: 20091009
  Serious: Yes (Hospitalization, Other)
  Sender: FDA-Public Use
  Company Number: B0560572A

PATIENT
  Age: 45 Year
  Sex: Female

DRUGS (6)
  1. ORLISTAT [Suspect]
     Indication: INVESTIGATION
     Dosage: 60MG THREE TIMES PER DAY
     Route: 048
     Dates: start: 20090117, end: 20090210
  2. MULTI-VITAMIN [Concomitant]
     Indication: VITAMIN SUPPLEMENTATION
     Dosage: 1TAB PER DAY
     Route: 048
     Dates: start: 20020101
  3. ALEVE [Concomitant]
     Dates: start: 20060101
  4. GLUCOSAMINE [Concomitant]
     Indication: ROUTINE HEALTH MAINTENANCE
     Dosage: 1TAB PER DAY
     Route: 048
     Dates: start: 20081101
  5. NYQUIL [Concomitant]
     Dosage: 2TBS AS REQUIRED
     Route: 048
     Dates: start: 20090124, end: 20090124
  6. ZICAM [Concomitant]
     Route: 048
     Dates: start: 20090124, end: 20090124

REACTIONS (14)
  - ABDOMINAL PAIN [None]
  - BILIARY TRACT DISORDER [None]
  - BLOOD BILIRUBIN INCREASED [None]
  - CHEST PAIN [None]
  - CHOLELITHIASIS [None]
  - FLANK PAIN [None]
  - FLATULENCE [None]
  - HYPOAESTHESIA [None]
  - INFECTION [None]
  - MUSCULOSKELETAL PAIN [None]
  - NEPHROLITHIASIS [None]
  - PROCEDURAL COMPLICATION [None]
  - RENAL PAIN [None]
  - STENT PLACEMENT [None]
